FAERS Safety Report 5202310-7 (Version None)
Quarter: 2007Q1

REPORT INFORMATION
  Report Type: 
  Country: None (occurrence: None)
  Receive Date: 20070109
  Receipt Date: 20061229
  Transmission Date: 20070707
  Serious: Yes (Hospitalization)
  Sender: FDA-Public Use
  Company Number: CN-ELI_LILLY_AND_COMPANY-CN200701000012

PATIENT
  Age: 42 Year
  Sex: Male
  Weight: 66 kg

DRUGS (5)
  1. ALIMTA [Suspect]
     Indication: PLEURAL MESOTHELIOMA MALIGNANT
     Dosage: 1 G, DAY 1, Q21D
     Route: 042
     Dates: start: 20061009, end: 20061121
  2. CISPLATIN [Concomitant]
     Indication: PLEURAL MESOTHELIOMA MALIGNANT
     Dosage: 150 MG, DAY 1, Q21D
     Route: 042
     Dates: start: 20061009, end: 20061121
  3. DEXAMETHASONE [Concomitant]
     Indication: PROPHYLAXIS
     Dosage: 4 MG, 2/D
     Route: 048
     Dates: start: 20061007, end: 20061009
  4. CENTRUM [Concomitant]
     Indication: SUPPLEMENTATION THERAPY
     Dosage: 1 TABLET, DAILY (1/D)
     Route: 048
     Dates: start: 20061001
  5. VITAMIN B-12 [Concomitant]
     Indication: SUPPLEMENTATION THERAPY
     Dosage: 1000 UG, DAILY (1/D)
     Route: 030
     Dates: start: 20061002, end: 20061002

REACTIONS (1)
  - HEPATITIS ACUTE [None]
